FAERS Safety Report 9887271 (Version 1)
Quarter: 2014Q1

REPORT INFORMATION
  Report Type: Spontaneous
  Country: US (occurrence: US)
  Receive Date: 20140211
  Receipt Date: 20140211
  Transmission Date: 20141002
  Serious: No
  Sender: FDA-Public Use
  Company Number: US-BIOGENIDEC-2014BI010517

PATIENT
  Age: 41 Year
  Sex: Male
  Weight: 172 kg

DRUGS (22)
  1. TECFIDERA [Suspect]
     Indication: PRODUCT USED FOR UNKNOWN INDICATION
     Route: 048
  2. TECFIDERA [Suspect]
     Indication: PRODUCT USED FOR UNKNOWN INDICATION
     Route: 048
  3. REQUIP [Concomitant]
     Route: 048
  4. ZYRTEC [Concomitant]
     Route: 048
  5. MARINOL [Concomitant]
     Route: 048
  6. MELOXICAM [Concomitant]
  7. PREDNISONE [Concomitant]
     Route: 048
  8. RITALIN LA [Concomitant]
     Route: 048
  9. RITALIN [Concomitant]
     Route: 048
  10. LISINOPRIL [Concomitant]
     Route: 048
  11. OMEPRAZOLE [Concomitant]
     Route: 048
  12. VALIUM [Concomitant]
     Route: 048
  13. BACLOFEN [Concomitant]
     Route: 048
  14. PROZAC [Concomitant]
     Route: 048
  15. HYDROCO/APAP 10-500 [Concomitant]
  16. NAMENDA [Concomitant]
     Route: 048
  17. MORPHINE SUL ER [Concomitant]
  18. ATORVASTATIN [Concomitant]
     Route: 048
  19. FISH OIL [Concomitant]
     Route: 048
  20. VITAMIN D [Concomitant]
     Route: 048
  21. BENADRYL [Concomitant]
     Route: 048
  22. VITAMIN B12 [Concomitant]
     Route: 048

REACTIONS (3)
  - Peripheral coldness [Unknown]
  - Feeling cold [Unknown]
  - Upper-airway cough syndrome [Unknown]
